FAERS Safety Report 16136200 (Version 1)
Quarter: 2019Q1

REPORT INFORMATION
  Report Type: Spontaneous
  Country: US (occurrence: US)
  Receive Date: 20190329
  Receipt Date: 20190329
  Transmission Date: 20190418
  Serious: No
  Sender: FDA-Public Use
  Company Number: US-PFIZER INC-2019091471

PATIENT
  Age: 60 Year
  Sex: Female
  Weight: 52.11 kg

DRUGS (6)
  1. WELLBUTRIN [Concomitant]
     Active Substance: BUPROPION HYDROCHLORIDE
     Indication: DEPRESSION
     Dosage: 1 DF, 1X/DAY
  2. LYRICA [Suspect]
     Active Substance: PREGABALIN
     Indication: SPINAL CORD INJURY
     Dosage: 150 MG, 3X/DAY (90 CAPSULE DAYS^ SUPPLY: 30 DAYS/1 Q 8 HOURS)
  3. BONIVA [Concomitant]
     Active Substance: IBANDRONATE SODIUM
     Dosage: UNK, MONTHLY
  4. BONIVA [Concomitant]
     Active Substance: IBANDRONATE SODIUM
     Indication: OSTEOPOROSIS
     Dosage: UNK, WEEKLY
  5. LYRICA [Suspect]
     Active Substance: PREGABALIN
     Indication: NEURALGIA
     Dosage: 300 MG, 3X/DAY
     Route: 048
  6. LEXAPRO [Concomitant]
     Active Substance: ESCITALOPRAM OXALATE
     Indication: DEPRESSION
     Dosage: 1 DF, 1X/DAY

REACTIONS (2)
  - Drug ineffective [Not Recovered/Not Resolved]
  - Overdose [Unknown]
